FAERS Safety Report 5794079-2 (Version None)
Quarter: 2008Q2

REPORT INFORMATION
  Report Type: 
  Country: None (occurrence: None)
  Receive Date: 20080627
  Receipt Date: 20080618
  Transmission Date: 20081010
  Serious: Yes (Other)
  Sender: FDA-Public Use
  Company Number: BR-PFIZER INC-2008049069

PATIENT
  Sex: Female
  Weight: 66 kg

DRUGS (4)
  1. DEPO-PROVERA SUSPENSION/INJ [Suspect]
     Indication: OFF LABEL USE
     Route: 030
     Dates: start: 20080604, end: 20080604
  2. DEPO-PROVERA SUSPENSION/INJ [Suspect]
     Indication: MENSTRUAL DISCOMFORT
  3. FERROUS GLYCINE SULFATE [Concomitant]
  4. CERAZETTE [Concomitant]
     Indication: MENORRHAGIA
     Route: 048
     Dates: start: 20080504, end: 20080603

REACTIONS (4)
  - BLOOD PRESSURE INCREASED [None]
  - DRUG INEFFECTIVE FOR UNAPPROVED INDICATION [None]
  - HEADACHE [None]
  - PELVIC PAIN [None]
